FAERS Safety Report 9191683 (Version 1)
Quarter: 2013Q1

REPORT INFORMATION
  Report Type: Spontaneous
  Country: US (occurrence: US)
  Receive Date: 20130326
  Receipt Date: 20130326
  Transmission Date: 20140127
  Serious: No
  Sender: FDA-Public Use
  Company Number: US-009507513-1303USA008257

PATIENT
  Sex: Male

DRUGS (1)
  1. INTERFERON ALFA-2B [Suspect]
     Indication: HEPATITIS C

REACTIONS (6)
  - Balance disorder [Unknown]
  - Memory impairment [Unknown]
  - Vomiting [Unknown]
  - Decreased appetite [Unknown]
  - Weight decreased [Unknown]
  - Headache [Unknown]
